FAERS Safety Report 5387840-X (Version None)
Quarter: 2007Q3

REPORT INFORMATION
  Report Type: 
  Country: None (occurrence: None)
  Receive Date: 20070716
  Receipt Date: 20060717
  Transmission Date: 20080115
  Serious: No
  Sender: FDA-Public Use
  Company Number: A0612295A

PATIENT
  Age: 58 Year
  Sex: Male

DRUGS (1)
  1. NICORETTE [Suspect]
     Indication: ILL-DEFINED DISORDER

REACTIONS (2)
  - MOUTH ULCERATION [None]
  - STOMATITIS [None]
